FAERS Safety Report 5828691-9 (Version None)
Quarter: 2008Q3

REPORT INFORMATION
  Report Type: 
  Country: None (occurrence: None)
  Receive Date: 20080730
  Receipt Date: 20080730
  Transmission Date: 20090109
  Serious: No
  Sender: FDA-Public Use
  Company Number: None

PATIENT
  Sex: Female
  Weight: 74.8435 kg

DRUGS (1)
  1. GABAPENTIN [Suspect]
     Indication: TRIGEMINAL NEURALGIA
     Dosage: 1 TO 2 CAPSULES AT BEDTIME DAILY PO
     Route: 048
     Dates: start: 20080727, end: 20080729

REACTIONS (2)
  - DRUG INEFFECTIVE [None]
  - THERAPEUTIC RESPONSE UNEXPECTED WITH DRUG SUBSTITUTION [None]
